FAERS Safety Report 13616672 (Version 1)
Quarter: 2017Q2

REPORT INFORMATION
  Report Type: Spontaneous
  Country: US (occurrence: US)
  Receive Date: 20170606
  Receipt Date: 20170606
  Transmission Date: 20170830
  Serious: No
  Sender: FDA-Public Use
  Company Number: US-SA-2016SA108799

PATIENT
  Age: 68 Year
  Sex: Male

DRUGS (4)
  1. LANTUS SOLOSTAR [Suspect]
     Active Substance: INSULIN GLARGINE
     Indication: TYPE 2 DIABETES MELLITUS
     Dosage: DOSE:37 UNIT(S)
     Route: 065
     Dates: start: 2015, end: 2016
  2. SOLOSTAR [Concomitant]
     Active Substance: DEVICE
     Dates: start: 2016, end: 20160605
  3. LANTUS SOLOSTAR [Suspect]
     Active Substance: INSULIN GLARGINE
     Indication: TYPE 2 DIABETES MELLITUS
     Dosage: DOSE:37 UNIT(S)
     Route: 065
     Dates: start: 2016, end: 20160605
  4. SOLOSTAR [Concomitant]
     Active Substance: DEVICE
     Dates: start: 2015, end: 2016

REACTIONS (6)
  - Headache [Recovered/Resolved]
  - Hyperhidrosis [Recovered/Resolved]
  - Incorrect route of drug administration [Unknown]
  - Dizziness [Recovered/Resolved]
  - Hypoglycaemia [Recovered/Resolved]
  - Dizziness [Recovered/Resolved]

NARRATIVE: CASE EVENT DATE: 201604
